FAERS Safety Report 17697659 (Version 1)
Quarter: 2020Q2

REPORT INFORMATION
  Report Type: Spontaneous
  Country: US (occurrence: US)
  Receive Date: 20200422
  Receipt Date: 20200422
  Transmission Date: 20200714
  Serious: Yes (Hospitalization)
  Sender: FDA-Public Use
  Company Number: None

PATIENT
  Sex: Female
  Weight: 52.6 kg

DRUGS (4)
  1. VINBLASTINE SULFATE. [Concomitant]
     Active Substance: VINBLASTINE SULFATE
     Dates: end: 20200403
  2. DACARABINE [Suspect]
     Active Substance: DACARBAZINE
     Dates: end: 20200403
  3. DOXORUBICIN HYDROCHLORIDE. [Concomitant]
     Active Substance: DOXORUBICIN HYDROCHLORIDE
     Dates: end: 20200403
  4. SGN-35 (BRENTUXIMAB VEDOTIN) [Concomitant]
     Active Substance: BRENTUXIMAB VEDOTIN
     Dates: end: 20200403

REACTIONS (10)
  - Abdominal pain [None]
  - Electrocardiogram QT prolonged [None]
  - Tachycardia [None]
  - Heart rate irregular [None]
  - Hypertension [None]
  - Cardiac arrest [None]
  - Electrocardiogram T wave abnormal [None]
  - Pulmonary embolism [None]
  - Nausea [None]
  - Bradycardia [None]

NARRATIVE: CASE EVENT DATE: 20200412
